FAERS Safety Report 20712832 (Version 2)
Quarter: 2022Q2

REPORT INFORMATION
  Report Type: Spontaneous
  Country: US (occurrence: US)
  Receive Date: 20220415
  Receipt Date: 20220504
  Transmission Date: 20220720
  Serious: Yes (Other)
  Sender: FDA-Public Use
  Company Number: US-MLMSERVICE-20220331-3469618-1

PATIENT
  Age: 49 Year
  Sex: Female

DRUGS (12)
  1. METHOTREXATE [Suspect]
     Active Substance: METHOTREXATE
     Indication: Epstein-Barr virus infection
     Dosage: 3 CYCLES OF INTRAVITREOUS METHOTREXATE 400 UG
     Route: 031
  2. CLINDAMYCIN [Concomitant]
     Active Substance: CLINDAMYCIN
     Indication: Necrotising retinitis
     Route: 031
  3. PREDNISOLONE ACETATE [Concomitant]
     Active Substance: PREDNISOLONE ACETATE
     Indication: Epstein-Barr virus infection
     Dosage: STRENGTH: 1%
     Route: 047
  4. TOPIRAMATE [Concomitant]
     Active Substance: TOPIRAMATE
     Indication: Idiopathic intracranial hypertension
  5. DEXAMETHASONE [Concomitant]
     Active Substance: DEXAMETHASONE
     Indication: Epstein-Barr virus infection
     Route: 031
  6. GANCICLOVIR [Concomitant]
     Active Substance: GANCICLOVIR
     Indication: Necrotising retinitis
     Route: 048
  7. LEVOTHYROXINE [Concomitant]
     Active Substance: LEVOTHYROXINE
     Indication: Thyroid disorder
  8. HYDRALAZINE [Concomitant]
     Active Substance: HYDRALAZINE HYDROCHLORIDE
     Indication: Hypertension
  9. FOSCARNET [Concomitant]
     Active Substance: FOSCARNET
     Indication: Necrotising retinitis
     Dosage: WEEKLY, STRENGTH: 2.4 MG
     Route: 031
  10. PREDNISONE [Concomitant]
     Active Substance: PREDNISONE
     Indication: Immunosuppressant drug therapy
     Route: 048
  11. MYCOPHENOLATE MOFETIL [Concomitant]
     Active Substance: MYCOPHENOLATE MOFETIL
     Indication: Immunosuppressant drug therapy
     Dosage: REDUCED
  12. CARVEDILOL [Concomitant]
     Active Substance: CARVEDILOL
     Indication: Hypertension

REACTIONS (4)
  - Hyphaema [Recovered/Resolved]
  - Vitreous haemorrhage [Recovered/Resolved]
  - Corneal disorder [Recovered/Resolved]
  - Off label use [Unknown]
